FAERS Safety Report 8481604-6 (Version None)
Quarter: 2012Q3

REPORT INFORMATION
  Report Type: 
  Country: None (occurrence: None)
  Receive Date: 20120702
  Receipt Date: 20120626
  Transmission Date: 20120928
  Serious: Yes (Other)
  Sender: FDA-Public Use
  Company Number: GB-PFIZER INC-2012051740

PATIENT
  Age: 73 Year
  Sex: Male

DRUGS (2)
  1. CELECOXIB [Suspect]
     Indication: OSTEOARTHRITIS
     Dosage: 100 MG, 2X/DAY
     Route: 048
     Dates: start: 20100616, end: 20120223
  2. NITROFURANTOIN [Concomitant]
     Indication: URINARY TRACT INFECTION
     Dosage: 100 MG, 2X/DAY
     Dates: start: 20110117, end: 20110607

REACTIONS (1)
  - CEREBROVASCULAR DISORDER [None]
